FAERS Safety Report 14841082 (Version 1)
Quarter: 2018Q2

REPORT INFORMATION
  Report Type: Spontaneous
  Country: US (occurrence: US)
  Receive Date: 20180503
  Receipt Date: 20180503
  Transmission Date: 20180711
  Serious: No
  Sender: FDA-Public Use
  Company Number: US-SUNOVION-2018SUN001641

PATIENT

DRUGS (1)
  1. LONHALA MAGNAIR [Suspect]
     Active Substance: GLYCOPYRROLATE
     Indication: CHRONIC OBSTRUCTIVE PULMONARY DISEASE
     Dosage: UNK
     Route: 055

REACTIONS (7)
  - Confusional state [Unknown]
  - Chest discomfort [Unknown]
  - Cough [Unknown]
  - Drug administration error [Unknown]
  - Pain [Unknown]
  - Asthenia [Unknown]
  - Throat irritation [Unknown]
